FAERS Safety Report 20713022 (Version 1)
Quarter: 2022Q2

REPORT INFORMATION
  Report Type: Spontaneous
  Country: ES (occurrence: ES)
  Receive Date: 20220415
  Receipt Date: 20220415
  Transmission Date: 20220721
  Serious: Yes (Hospitalization, Other)
  Sender: FDA-Public Use
  Company Number: ES-MLMSERVICE-20220331-3471137-1

PATIENT
  Age: 60 Year
  Sex: Male

DRUGS (7)
  1. FLUOXETINE [Interacting]
     Active Substance: FLUOXETINE HYDROCHLORIDE
     Indication: Schizoaffective disorder
     Dosage: 20 MILLIGRAM, ONCE A DAY
     Route: 065
     Dates: start: 201604, end: 201606
  2. QUETIAPINE [Interacting]
     Active Substance: QUETIAPINE
     Indication: Schizoaffective disorder
     Dosage: 100 MILLIGRAM, ONCE A DAY
     Route: 065
     Dates: start: 201604, end: 201606
  3. AMISULPRIDE [Concomitant]
     Active Substance: AMISULPRIDE
     Indication: Schizoaffective disorder
     Dosage: 400 MILLIGRAM, ONCE A DAY
     Route: 065
     Dates: start: 1994, end: 201512
  4. AMISULPRIDE [Concomitant]
     Active Substance: AMISULPRIDE
     Dosage: 800 MILLIGRAM, ONCE A DAY
     Route: 065
     Dates: start: 201512, end: 201604
  5. AMISULPRIDE [Concomitant]
     Active Substance: AMISULPRIDE
     Dosage: 600 MILLIGRAM, ONCE A DAY
     Route: 065
     Dates: start: 201604, end: 201606
  6. LORAZEPAM [Concomitant]
     Active Substance: LORAZEPAM
     Indication: Schizoaffective disorder
     Dosage: UNK
     Route: 065
     Dates: start: 201604, end: 2016
  7. LORMETAZEPAM [Concomitant]
     Active Substance: LORMETAZEPAM
     Indication: Schizoaffective disorder
     Dosage: UNK
     Route: 065
     Dates: start: 201604, end: 2016

REACTIONS (4)
  - Drug interaction [Unknown]
  - Deep vein thrombosis [Unknown]
  - Gastrointestinal haemorrhage [Unknown]
  - Drug level increased [Unknown]

NARRATIVE: CASE EVENT DATE: 20160101
